FAERS Safety Report 5379554-7 (Version None)
Quarter: 2007Q3

REPORT INFORMATION
  Report Type: 
  Country: None (occurrence: None)
  Receive Date: 20070703
  Receipt Date: 20070618
  Transmission Date: 20080115
  Serious: Yes (Hospitalization)
  Sender: FDA-Public Use
  Company Number: TRP_00969_2007

PATIENT
  Sex: Male
  Weight: 76.2043 kg

DRUGS (2)
  1. RIBASPHERE [Suspect]
     Indication: HEPATITIS C
     Dosage: ORAL
     Route: 048
     Dates: start: 20070503
  2. PEGASYS [Suspect]
     Indication: HEPATITIS C
     Dosage: SUBCUTANEOUS
     Route: 058
     Dates: start: 20070503

REACTIONS (9)
  - DEHYDRATION [None]
  - FATIGUE [None]
  - HAEMATEMESIS [None]
  - HEADACHE [None]
  - HEPATIC PAIN [None]
  - NAUSEA [None]
  - PURULENCE [None]
  - RASH [None]
  - WEIGHT DECREASED [None]
